FAERS Safety Report 8300429-5 (Version None)
Quarter: 2012Q2

REPORT INFORMATION
  Report Type: 
  Country: None (occurrence: None)
  Receive Date: 20120420
  Receipt Date: 20120418
  Transmission Date: 20120825
  Serious: No
  Sender: FDA-Public Use
  Company Number: US-PFIZER INC-2012097505

PATIENT
  Sex: Male
  Weight: 87.982 kg

DRUGS (3)
  1. ATENOLOL [Concomitant]
     Dosage: UNK
  2. LIPITOR [Suspect]
     Indication: BLOOD CHOLESTEROL ABNORMAL
     Dosage: 40 MG, DAILY
     Dates: start: 20120124, end: 20120201
  3. LISINOPRIL [Concomitant]
     Dosage: UNK

REACTIONS (1)
  - FATIGUE [None]
